FAERS Safety Report 24406300 (Version 1)
Quarter: 2024Q4

REPORT INFORMATION
  Report Type: Spontaneous
  Country: GB (occurrence: GB)
  Receive Date: 20241007
  Receipt Date: 20241007
  Transmission Date: 20250114
  Serious: Yes (Hospitalization)
  Sender: VERTEX
  Company Number: GB-VERTEX PHARMACEUTICALS-2024-015437

PATIENT
  Sex: Male

DRUGS (4)
  1. ELEXACAFTOR\IVACAFTOR\TEZACAFTOR [Suspect]
     Active Substance: ELEXACAFTOR\IVACAFTOR\TEZACAFTOR
     Indication: Cystic fibrosis
     Dosage: TWO TABLETS (37.5 MG IVACAFTOR/ 25 MG TEZACAFTOR/ 50 MG ELEXACAFTOR) IN THE MORNING
     Route: 048
     Dates: start: 20240101, end: 2024
  2. ELEXACAFTOR\IVACAFTOR\TEZACAFTOR [Suspect]
     Active Substance: ELEXACAFTOR\IVACAFTOR\TEZACAFTOR
     Dosage: 2 DOSES A WEEK
     Route: 048
     Dates: start: 2024
  3. KALYDECO [Suspect]
     Active Substance: IVACAFTOR
     Indication: Cystic fibrosis
     Dosage: 75 MG TAB
     Route: 048
     Dates: start: 20240101, end: 2024
  4. KALYDECO [Suspect]
     Active Substance: IVACAFTOR
     Dosage: TWO DOSES A WEEK
     Route: 048
     Dates: start: 2024

REACTIONS (1)
  - Pneumonia [Unknown]

NARRATIVE: CASE EVENT DATE: 20240101
